FAERS Safety Report 7108835-1 (Version None)
Quarter: 2010Q4

REPORT INFORMATION
  Report Type: 
  Country: None (occurrence: None)
  Receive Date: 20101117
  Receipt Date: 20101108
  Transmission Date: 20110411
  Serious: Yes (Hospitalization)
  Sender: FDA-Public Use
  Company Number: DE-ASTRAZENECA-2010SE53399

PATIENT
  Age: 21 Year
  Sex: Male

DRUGS (3)
  1. SEROQUEL [Suspect]
     Route: 048
     Dates: start: 20100805, end: 20100812
  2. SEROQUEL [Suspect]
     Route: 048
     Dates: start: 20100813
  3. ZOPICLONE [Suspect]
     Indication: SLEEP DISORDER
     Route: 048
     Dates: start: 20100811

REACTIONS (1)
  - DEPRESSED LEVEL OF CONSCIOUSNESS [None]
